FAERS Safety Report 12584764 (Version 2)
Quarter: 2016Q3

REPORT INFORMATION
  Report Type: Spontaneous
  Country: CN (occurrence: CN)
  Receive Date: 20160722
  Receipt Date: 20160801
  Transmission Date: 20161109
  Serious: Yes (Hospitalization)
  Sender: FDA-Public Use
  Company Number: CN-SA-2016SA133083

PATIENT
  Age: 61 Year
  Sex: Male

DRUGS (6)
  1. AMLODIPINE BESILATE [Concomitant]
     Active Substance: AMLODIPINE BESYLATE
     Indication: HYPERTENSION
     Route: 048
  2. BENZENESULFONIC ACID. [Concomitant]
     Active Substance: BENZENESULFONIC ACID
     Route: 048
  3. ACARBOSE. [Concomitant]
     Active Substance: ACARBOSE
     Indication: TYPE 2 DIABETES MELLITUS
     Route: 048
  4. IRBESARTAN. [Suspect]
     Active Substance: IRBESARTAN
     Indication: ESSENTIAL HYPERTENSION
     Route: 048
     Dates: start: 2014, end: 201411
  5. LOSARTAN POTASSIUM. [Concomitant]
     Active Substance: LOSARTAN POTASSIUM
     Route: 048
  6. HYDROCHLOROTHIAZIDE/IRBESARTAN [Suspect]
     Active Substance: HYDROCHLOROTHIAZIDE\IRBESARTAN
     Indication: HYPERTENSION
     Dosage: IRBESARTAN WITH HYDROCHLOROTHIAZIDE (150 MG/12.5 MG)
     Route: 048
     Dates: start: 20141127, end: 20141127

REACTIONS (16)
  - Eyelid oedema [Recovered/Resolved]
  - Mobility decreased [Recovered/Resolved]
  - Pain [Recovered/Resolved]
  - Face oedema [Recovered/Resolved]
  - Blister [Recovered/Resolved]
  - Therapeutic response decreased [Unknown]
  - Erythema [Recovered/Resolved]
  - Rash maculo-papular [Recovered/Resolved]
  - Secretion discharge [Recovered/Resolved]
  - Skin warm [Recovered/Resolved]
  - Dizziness [Unknown]
  - Epidermolysis bullosa [Recovered/Resolved]
  - Rash [Recovered/Resolved]
  - Rash vesicular [Recovered/Resolved]
  - Skin lesion [Recovered/Resolved]
  - Blood pressure fluctuation [Unknown]

NARRATIVE: CASE EVENT DATE: 20141127
